FAERS Safety Report 20888885 (Version 1)
Quarter: 2022Q2

REPORT INFORMATION
  Report Type: Report from Study
  Country: US (occurrence: US)
  Receive Date: 20220529
  Receipt Date: 20220529
  Transmission Date: 20220721
  Serious: Yes (Other)
  Sender: FDA-Public Use
  Company Number: US-BRISTOL-MYERS SQUIBB COMPANY-2022-028864

PATIENT
  Age: 67 Year
  Sex: Male
  Weight: 78.93 kg

DRUGS (7)
  1. REVLIMID [Suspect]
     Active Substance: LENALIDOMIDE
     Indication: Plasma cell myeloma
     Route: 048
     Dates: start: 202204
  2. DEXAMETHASONE [Concomitant]
     Active Substance: DEXAMETHASONE
  3. CARVEDILOL [Concomitant]
     Active Substance: CARVEDILOL
  4. METOPROLOL SUCCINATE [Concomitant]
     Active Substance: METOPROLOL SUCCINATE
  5. OMEPRAZOLE [Concomitant]
     Active Substance: OMEPRAZOLE
  6. ASPIRIN [Concomitant]
     Active Substance: ASPIRIN
  7. IRON [Concomitant]
     Active Substance: IRON

REACTIONS (3)
  - Nausea [Unknown]
  - Dizziness [Unknown]
  - Asthenia [Unknown]
